FAERS Safety Report 13928198 (Version 5)
Quarter: 2018Q1

REPORT INFORMATION
  Report Type: Report from Study
  Country: LB (occurrence: LB)
  Receive Date: 20170901
  Receipt Date: 20180202
  Transmission Date: 20180508
  Serious: Yes (Hospitalization, Other)
  Sender: FDA-Public Use
  Company Number: PHHY2017LB126183

PATIENT
  Age: 51 Year
  Sex: Male

DRUGS (7)
  1. ENTRESTO [Suspect]
     Active Substance: SACUBITRIL\VALSARTAN
     Dosage: 0.5 DF, BID ((100 MG TABLE TO BE DIVIDED INTO TWO))
     Route: 048
     Dates: start: 20171124
  2. BURINEX [Concomitant]
     Active Substance: BUMETANIDE
     Dosage: 5 MG, UNK
     Route: 048
  3. BURINEX [Concomitant]
     Active Substance: BUMETANIDE
     Dosage: 1 MG, UNK
     Route: 048
  4. CONCOR [Concomitant]
     Active Substance: BISOPROLOL FUMARATE
     Indication: PRODUCT USED FOR UNKNOWN INDICATION
     Dosage: 2.5 MG, UNK
     Route: 048
     Dates: start: 2016
  5. ENTRESTO [Suspect]
     Active Substance: SACUBITRIL\VALSARTAN
     Indication: PRODUCT USED FOR UNKNOWN INDICATION
     Dosage: 100 MG, BID
     Route: 048
     Dates: start: 20170727, end: 20170817
  6. ENTRESTO [Suspect]
     Active Substance: SACUBITRIL\VALSARTAN
     Dosage: 0.5 DF, QD (100 MG TABLE TO BE DIVIDED INTO TWO)
     Route: 048
     Dates: start: 20170818, end: 20171120
  7. BURINEX [Concomitant]
     Active Substance: BUMETANIDE
     Indication: PRODUCT USED FOR UNKNOWN INDICATION
     Dosage: 1 MG, UNK
     Route: 048
     Dates: start: 2017

REACTIONS (10)
  - Blood creatinine increased [Recovering/Resolving]
  - Wrong technique in product usage process [Unknown]
  - C-reactive protein increased [Recovering/Resolving]
  - Cough [Recovered/Resolved]
  - Blood urea increased [Recovering/Resolving]
  - Oedema peripheral [Recovered/Resolved]
  - Red blood cell sedimentation rate increased [Recovering/Resolving]
  - Pulmonary oedema [Recovered/Resolved]
  - Influenza [Not Recovered/Not Resolved]
  - Prescribed underdose [Unknown]

NARRATIVE: CASE EVENT DATE: 20170812
